FAERS Safety Report 16824522 (Version 1)
Quarter: 2019Q3

REPORT INFORMATION
  Report Type: Spontaneous
  Country: NZ (occurrence: NZ)
  Receive Date: 20190918
  Receipt Date: 20190918
  Transmission Date: 20191005
  Serious: Yes (Other)
  Sender: FDA-Public Use
  Company Number: NZ-JNJFOC-20190923008

PATIENT
  Age: 36 Year
  Sex: Female

DRUGS (3)
  1. TRAMADOL HYDROCHLORIDE. [Suspect]
     Active Substance: TRAMADOL HYDROCHLORIDE
     Indication: ROTATOR CUFF SYNDROME
     Dosage: 100 MG, UNK
     Route: 048
     Dates: start: 20190619, end: 20190619
  2. PROGYNOVA                          /00045401/ [Concomitant]
     Active Substance: ESTRADIOL VALERATE
     Dosage: UNK
  3. CYPROTERONE ACETATE [Concomitant]
     Active Substance: CYPROTERONE ACETATE
     Indication: POLYCYSTIC OVARIES
     Dosage: UNK

REACTIONS (5)
  - Hyperhidrosis [Recovering/Resolving]
  - Muscle twitching [Recovering/Resolving]
  - Dizziness [Recovering/Resolving]
  - Vomiting [Recovering/Resolving]
  - Nausea [Recovering/Resolving]

NARRATIVE: CASE EVENT DATE: 20190619
